FAERS Safety Report 8434811-2 (Version None)
Quarter: 2012Q2

REPORT INFORMATION
  Report Type: 
  Country: None (occurrence: None)
  Receive Date: 20120611
  Receipt Date: 20120611
  Transmission Date: 20120825
  Serious: Yes (Life-Threatening, Hospitalization)
  Sender: FDA-Public Use
  Company Number: None

PATIENT
  Sex: Male
  Weight: 100 kg

DRUGS (3)
  1. ASPIRIN [Concomitant]
  2. PLAVIX [Suspect]
     Indication: ISCHAEMIC CARDIOMYOPATHY
     Dosage: CLOPIDOGREL 75 MG? (PLAVIX) Q DAILY PO  UNKNOWN ON OR BEFORE 5/7/12
     Route: 048
  3. PRADAXA [Suspect]
     Indication: ATRIAL FLUTTER
     Dosage: DABIGATRAN 150 MG (PRADAXA) Q 12 HRS PO  UNKNOWN, STARTEDON/ORBEFORE5/7/12
     Route: 048

REACTIONS (8)
  - CONFUSIONAL STATE [None]
  - HAEMOGLOBIN DECREASED [None]
  - RECTAL HAEMORRHAGE [None]
  - INTERNATIONAL NORMALISED RATIO INCREASED [None]
  - ABDOMINAL PAIN [None]
  - UPPER GASTROINTESTINAL HAEMORRHAGE [None]
  - SHOCK HAEMORRHAGIC [None]
  - ISCHAEMIC HEPATITIS [None]
